FAERS Safety Report 7878742-5 (Version None)
Quarter: 2011Q4

REPORT INFORMATION
  Report Type: 
  Country: None (occurrence: None)
  Receive Date: 20111021
  Receipt Date: 20110816
  Transmission Date: 20120403
  Serious: No
  Sender: FDA-Public Use
  Company Number: US-006094

PATIENT
  Sex: Male

DRUGS (15)
  1. NIFEDIPINE [Concomitant]
  2. ASPIRIN [Concomitant]
  3. POTASSIUM [Concomitant]
  4. METFORMIN HCL [Concomitant]
  5. PREDNISONE [Concomitant]
  6. SIMVASTATIN [Concomitant]
  7. PIOGLITAZONE [Concomitant]
  8. HYDROCHLOROTHIAZIDE [Concomitant]
  9. C-VITAMIN [Concomitant]
  10. GABAPENTIN [Concomitant]
  11. NEURONTIN [Concomitant]
  12. SIMETHICONE [Concomitant]
  13. LEVOTHYROXINE SODIUM [Concomitant]
  14. DEGARELIX (240 MG, 80 MG) [Suspect]
     Indication: PROSTATE CANCER
     Dosage: 240 MG 1 X SUBCUTANEOUS
     Route: 058
     Dates: start: 20110613, end: 20110613
  15. DEGARELIX (240 MG, 80 MG) [Suspect]
     Indication: PROSTATE CANCER
     Dosage: 240 MG 1 X SUBCUTANEOUS
     Route: 058
     Dates: start: 20110711

REACTIONS (3)
  - FATIGUE [None]
  - DIZZINESS [None]
  - HEADACHE [None]
